FAERS Safety Report 8928989 (Version 4)
Quarter: 2013Q1

REPORT INFORMATION
  Report Type: Report from Study
  Country: DE (occurrence: DE)
  Receive Date: 20121127
  Receipt Date: 20130221
  Transmission Date: 20140127
  Serious: Yes (Hospitalization)
  Sender: FDA-Public Use
  Company Number: DE-OTSUKA-EU-2012-10218

PATIENT
  Sex: Female
  Weight: 65 kg

DRUGS (15)
  1. SAMSCA [Suspect]
     Indication: INAPPROPRIATE ANTIDIURETIC HORMONE SECRETION
     Dosage: 15 MG MILLIGRAM(S), QOD
     Route: 048
     Dates: start: 20120111
  2. PANTOPRAZOLE [Concomitant]
     Indication: GASTRITIS
     Dosage: 40 MG MILLIGRAM(S), DAILY DOSE
     Route: 048
     Dates: start: 2011
  3. AMLODIPIN [Concomitant]
     Indication: HYPERTENSION
     Dosage: 5 MG MILLIGRAM(S), DAILY DOSE
     Route: 048
     Dates: start: 2011
  4. KREON [Concomitant]
     Indication: PANCREATIC INSUFFICIENCY
     Dosage: 75000 IU, DAILY DOSE
     Route: 048
     Dates: start: 201204
  5. METAMIZOLE [Concomitant]
     Indication: PAIN
     Dosage: 4 G GRAM(S), DAILY DOSE
     Route: 048
     Dates: start: 20120314
  6. METAMIZOLE [Concomitant]
     Indication: SURGERY
  7. ENOXAPARIN [Concomitant]
     Indication: THROMBOSIS PROPHYLAXIS
     Dosage: 40 MG MILLIGRAM(S), DAILY DOSE
     Route: 058
     Dates: start: 201203
  8. OCTREOTIDE [Concomitant]
     Indication: PRODUCT USED FOR UNKNOWN INDICATION
     Dosage: 0.6 MG MILLIGRAM(S), DAILY DOSE
     Route: 058
     Dates: start: 20120313, end: 20120318
  9. TARGIN [Concomitant]
     Indication: PAIN
     Dosage: 20 MG MILLIGRAM(S), DAILY DOSE
     Route: 048
     Dates: start: 20120314, end: 201204
  10. ALLOPURINOL [Concomitant]
     Indication: PROPHYLAXIS
     Dosage: 300 MG MILLIGRAM(S), DAILY DOSE
     Route: 048
     Dates: start: 201210
  11. GABAPENTIN [Concomitant]
     Indication: PAIN
     Dosage: 1200 MG MILLIGRAM(S), DAILY DOSE
     Route: 048
     Dates: start: 201210
  12. ARCOXIA [Concomitant]
     Indication: PAIN
     Dosage: 90 MG MILLIGRAM(S), DAILY DOSE
     Route: 048
     Dates: start: 201210
  13. LIMPTAR [Concomitant]
     Indication: PAIN
     Dosage: 200 MG MILLIGRAM(S), DAILY DOSE
     Route: 048
     Dates: start: 201210
  14. APIXABAN [Concomitant]
     Indication: THROMBOSIS PROPHYLAXIS
     Dosage: 5 MG MILLIGRAM(S), DAILY DOSE
     Route: 048
     Dates: start: 201210
  15. FOSAVANCE [Concomitant]
     Indication: OSTEOPOROSIS PROPHYLAXIS
     Dosage: 70 MG MILLIGRAM(S), QW
     Dates: start: 201210

REACTIONS (10)
  - Blood potassium decreased [Recovered/Resolved]
  - Fall [Recovered/Resolved]
  - Femoral neck fracture [Recovered/Resolved]
  - Pancreatitis [Not Recovered/Not Resolved]
  - Vomiting [Recovered/Resolved]
  - Hypokalaemia [Recovered/Resolved]
  - Pruritus [Recovered/Resolved]
  - Nausea [Recovered/Resolved]
  - Decreased appetite [Recovered/Resolved]
  - Incorrect drug administration rate [Unknown]
